FAERS Safety Report 11970054 (Version 1)
Quarter: 2016Q1

REPORT INFORMATION
  Report Type: Report from Study
  Country: ES (occurrence: ES)
  Receive Date: 20160128
  Receipt Date: 20160128
  Transmission Date: 20160526
  Serious: Yes (Hospitalization)
  Sender: FDA-Public Use
  Company Number: ES-ASTELLAS-2008001422

PATIENT
  Age: 50 Year
  Sex: Female

DRUGS (6)
  1. FENTANYL. [Concomitant]
     Active Substance: FENTANYL
     Indication: PRODUCT USED FOR UNKNOWN INDICATION
     Route: 065
     Dates: start: 20080524, end: 20080911
  2. SEROPRAM [Concomitant]
     Active Substance: CITALOPRAM HYDROBROMIDE
     Indication: PRODUCT USED FOR UNKNOWN INDICATION
     Route: 065
     Dates: start: 200812
  3. CISPLATIN. [Suspect]
     Active Substance: CISPLATIN
     Indication: SQUAMOUS CELL CARCINOMA OF HEAD AND NECK
     Route: 042
     Dates: start: 20080428, end: 20080519
  4. DICLOFENAC [Concomitant]
     Active Substance: DICLOFENAC
     Indication: PRODUCT USED FOR UNKNOWN INDICATION
     Route: 065
     Dates: start: 20080522
  5. URBASON [Concomitant]
     Active Substance: METHYLPREDNISOLONE
     Indication: PRODUCT USED FOR UNKNOWN INDICATION
     Route: 065
     Dates: start: 20080524, end: 20080630
  6. ERLOTINIB [Suspect]
     Active Substance: ERLOTINIB
     Indication: SQUAMOUS CELL CARCINOMA OF HEAD AND NECK
     Route: 048
     Dates: start: 20080428, end: 20080525

REACTIONS (5)
  - Food intolerance [Recovered/Resolved]
  - Dysphagia [Recovered/Resolved]
  - Mucosal inflammation [Recovered/Resolved]
  - Dermatitis [Recovered/Resolved]
  - Vomiting [Recovered/Resolved]

NARRATIVE: CASE EVENT DATE: 20080523
